FAERS Safety Report 5463851-0 (Version None)
Quarter: 2007Q3

REPORT INFORMATION
  Report Type: 
  Country: None (occurrence: None)
  Receive Date: 20070921
  Receipt Date: 20070910
  Transmission Date: 20080115
  Serious: Yes (Other)
  Sender: FDA-Public Use
  Company Number: JP-MERCK-0709USA01865

PATIENT
  Age: 76 Year
  Sex: Female
  Weight: 52 kg

DRUGS (3)
  1. ZOCOR [Suspect]
     Indication: HYPERLIPIDAEMIA
     Route: 048
     Dates: start: 19980325, end: 20070122
  2. COD LIVER OIL [Suspect]
     Route: 048
     Dates: start: 20041201, end: 20070723
  3. NORVASC [Concomitant]
     Route: 048

REACTIONS (1)
  - HYPERCHOLESTEROLAEMIA [None]
